FAERS Safety Report 14498116 (Version 1)
Quarter: 2018Q1

REPORT INFORMATION
  Report Type: Spontaneous
  Country: US (occurrence: US)
  Receive Date: 20180206
  Receipt Date: 20180206
  Transmission Date: 20180509
  Serious: Yes (Hospitalization)
  Sender: FDA-Public Use
  Company Number: None

PATIENT
  Sex: Female

DRUGS (19)
  1. QUINAPRIL. [Concomitant]
     Active Substance: QUINAPRIL
  2. PROBIOTIC [Concomitant]
     Active Substance: PROBIOTICS NOS
  3. OMEPRAZOLE. [Concomitant]
     Active Substance: OMEPRAZOLE
  4. METFORMIN [Concomitant]
     Active Substance: METFORMIN HYDROCHLORIDE
  5. METHOTREXATE. [Concomitant]
     Active Substance: METHOTREXATE
  6. FIBER [Concomitant]
     Active Substance: PSYLLIUM HUSK
  7. JANUVIA [Concomitant]
     Active Substance: SITAGLIPTIN PHOSPHATE
  8. HUMIRA [Suspect]
     Active Substance: ADALIMUMAB
     Indication: PSORIATIC ARTHROPATHY
     Dosage: ?          OTHER FREQUENCY:Q OTHER WEEK;?
     Route: 058
     Dates: start: 20170725
  9. METOPROLOL TARTRATE. [Concomitant]
     Active Substance: METOPROLOL TARTRATE
  10. FOLIC ACID. [Concomitant]
     Active Substance: FOLIC ACID
  11. TANZEUM [Concomitant]
     Active Substance: ALBIGLUTIDE
  12. CELECOXIB. [Concomitant]
     Active Substance: CELECOXIB
  13. ASPIRIN. [Concomitant]
     Active Substance: ASPIRIN
  14. VITAMIN D [Concomitant]
     Active Substance: CHOLECALCIFEROL
  15. AMLODIPINE [Concomitant]
     Active Substance: AMLODIPINE BESYLATE
  16. IRON [Concomitant]
     Active Substance: IRON
  17. FISH OIL [Concomitant]
     Active Substance: FISH OIL
  18. MULTI-VITAMIN [Concomitant]
     Active Substance: .ALPHA.-TOCOPHEROL ACETATE, DL-\ASCORBIC ACID\CYANOCOBALAMIN\FLUORIDE ION\FOLIC ACID\NIACIN\PYRIDOXINE\RIBOFLAVIN\THIAMINE\VITAMIN A\VITAMIN D
  19. PRAVASTATIN. [Concomitant]
     Active Substance: PRAVASTATIN

REACTIONS (4)
  - Pain [None]
  - Loss of personal independence in daily activities [None]
  - Fall [None]
  - Condition aggravated [None]
